FAERS Safety Report 6517486-9 (Version None)
Quarter: 2009Q4

REPORT INFORMATION
  Report Type: 
  Country: None (occurrence: None)
  Receive Date: 20091224
  Receipt Date: 20091214
  Transmission Date: 20100525
  Serious: Yes (Hospitalization, Other)
  Sender: FDA-Public Use
  Company Number: US-CELGENEUS-163-21880-09112246

PATIENT
  Sex: Male

DRUGS (1)
  1. REVLIMID [Suspect]
     Indication: MULTIPLE MYELOMA
     Route: 048
     Dates: start: 20080901, end: 20091210

REACTIONS (5)
  - DRUG INEFFECTIVE [None]
  - HEPATIC LESION [None]
  - LUNG NEOPLASM [None]
  - PULMONARY EMBOLISM [None]
  - URINARY TRACT INFECTION [None]
